FAERS Safety Report 10547215 (Version 2)
Quarter: 2015Q2

REPORT INFORMATION
  Report Type: Report from Study
  Country: US (occurrence: US)
  Receive Date: 20141027
  Receipt Date: 20150605
  Transmission Date: 20150821
  Serious: Yes (Other)
  Sender: FDA-Public Use
  Company Number: US-MERCK-1410USA012425

PATIENT
  Age: 60 Year

DRUGS (2)
  1. DECADRON [Suspect]
     Active Substance: DEXAMETHASONE
     Indication: PLASMA CELL MYELOMA
     Dosage: DOSE OR AMOUNT: 40, FREQUENCY: DAYS 1-4, 8-11
     Route: 048
     Dates: start: 20101028, end: 20101231
  2. VELCADE [Suspect]
     Active Substance: BORTEZOMIB
     Indication: PLASMA CELL MYELOMA
     Dosage: DOSE OR AMOUNT: 1.3 MG/M2, FREQUENCY: DAYS 1,4,8,11
     Route: 042
     Dates: start: 20101028, end: 20101231

REACTIONS (1)
  - Abdominal pain [Unknown]

NARRATIVE: CASE EVENT DATE: 20101226
